FAERS Safety Report 17271287 (Version 1)
Quarter: 2020Q1

REPORT INFORMATION
  Report Type: Spontaneous
  Country: DE (occurrence: DE)
  Receive Date: 20200115
  Receipt Date: 20200115
  Transmission Date: 20200409
  Serious: Yes (Other)
  Sender: FDA-Public Use
  Company Number: DE-PFIZER INC-2020010338

PATIENT
  Age: 7 Decade
  Sex: Female

DRUGS (1)
  1. TAFAMIDIS MEGLUMINE [Suspect]
     Active Substance: TAFAMIDIS MEGLUMINE
     Indication: HEREDITARY NEUROPATHIC AMYLOIDOSIS

REACTIONS (4)
  - Suicidal ideation [Unknown]
  - Polyneuropathy [Unknown]
  - Quality of life decreased [Unknown]
  - Condition aggravated [Unknown]
